FAERS Safety Report 16677746 (Version 11)
Quarter: 2019Q4

REPORT INFORMATION
  Report Type: Spontaneous
  Country: JP (occurrence: JP)
  Receive Date: 20190807
  Receipt Date: 20191030
  Transmission Date: 20200122
  Serious: Yes (Death, Hospitalization, Other)
  Sender: FDA-Public Use
  Company Number: JP-AMGEN-JPNSP2019122395

PATIENT
  Age: 72 Year
  Sex: Female

DRUGS (4)
  1. ONEALFA [Concomitant]
     Active Substance: ALFACALCIDOL
     Indication: OSTEOPOROSIS
     Dosage: 1 MICROGRAM
     Dates: start: 201610
  2. CALFINA [Concomitant]
     Active Substance: ALFACALCIDOL
     Dosage: 1 MICROGRAM
     Route: 048
     Dates: start: 20190722, end: 20190722
  3. EVENITY [Suspect]
     Active Substance: ROMOSOZUMAB-AQQG
     Indication: OSTEOPOROSIS
     Dosage: 210 MILLIGRAM, QMO
     Route: 058
     Dates: start: 20190417, end: 20190717
  4. TERAMURO [Concomitant]
     Dosage: UNK
     Route: 048
     Dates: start: 20190722, end: 20190722

REACTIONS (2)
  - Lymphocyte stimulation test positive [Unknown]
  - Hepatitis fulminant [Fatal]

NARRATIVE: CASE EVENT DATE: 2019
